FAERS Safety Report 22942373 (Version 4)
Quarter: 2025Q1

REPORT INFORMATION
  Report Type: Report from Study
  Country: GB (occurrence: GB)
  Receive Date: 20230914
  Receipt Date: 20250206
  Transmission Date: 20250409
  Serious: Yes (Disabling)
  Sender: IPSEN BIOPHARMACEUTICALS, INC.
  Company Number: GB-KOREA IPSEN Pharma-2023-21605

PATIENT
  Age: 44 Year
  Sex: Female

DRUGS (2)
  1. LANREOTIDE ACETATE [Suspect]
     Active Substance: LANREOTIDE ACETATE
     Indication: Neuroendocrine tumour
     Route: 065
     Dates: start: 20230901
  2. LANREOTIDE ACETATE [Suspect]
     Active Substance: LANREOTIDE ACETATE
     Dosage: LANREOTIDE IPSEN
     Route: 065

REACTIONS (9)
  - Pain in extremity [Unknown]
  - Joint swelling [Unknown]
  - Eye swelling [Recovering/Resolving]
  - Blood uric acid decreased [Unknown]
  - Abdominal pain upper [Recovered/Resolved]
  - Vomiting [Recovered/Resolved]
  - Dizziness [Recovered/Resolved]
  - Abdominal pain upper [Recovered/Resolved]
  - Diarrhoea [Recovered/Resolved]

NARRATIVE: CASE EVENT DATE: 20230909
